FAERS Safety Report 18729731 (Version 3)
Quarter: 2021Q1

REPORT INFORMATION
  Report Type: Spontaneous
  Country: US (occurrence: US)
  Receive Date: 20210112
  Receipt Date: 20210115
  Transmission Date: 20210419
  Serious: Yes (Other)
  Sender: FDA-Public Use
  Company Number: US-ASTRAZENECA-2021A003249

PATIENT
  Sex: Female
  Weight: 109.3 kg

DRUGS (1)
  1. BYDUREON BCISE [Suspect]
     Active Substance: EXENATIDE
     Route: 058
     Dates: start: 2017, end: 2018

REACTIONS (3)
  - Injection site pain [Unknown]
  - Blindness [Unknown]
  - Device leakage [Unknown]
